FAERS Safety Report 24019364 (Version 1)
Quarter: 2024Q2

REPORT INFORMATION
  Report Type: Report from Study
  Country: BY (occurrence: BY)
  Receive Date: 20240627
  Receipt Date: 20240627
  Transmission Date: 20240715
  Serious: Yes (Death)
  Sender: FDA-Public Use
  Company Number: BY-MYLANLABS-2024M1058394

PATIENT
  Age: 66 Year
  Sex: Male
  Weight: 56.7 kg

DRUGS (11)
  1. PRETOMANID [Suspect]
     Active Substance: PRETOMANID
     Indication: Product used for unknown indication
     Dosage: 200 MILLIGRAM, QD (200 MG OD PO)
     Route: 048
     Dates: start: 20220616, end: 20221130
  2. BEDAQUILINE [Suspect]
     Active Substance: BEDAQUILINE
     Indication: Product used for unknown indication
     Dosage: 400 MILLIGRAM, QD (400 MG OD FOR 2 WEEKS)
     Route: 065
     Dates: start: 20220616
  3. BEDAQUILINE [Suspect]
     Active Substance: BEDAQUILINE
     Dosage: 200 MILLIGRAM, 3XW (200 MG TIW PO)
     Route: 048
     Dates: end: 20221130
  4. LINEZOLID [Suspect]
     Active Substance: LINEZOLID
     Indication: Product used for unknown indication
     Dosage: 600 MILLIGRAM, QD (600 MG OD PO FOR 16  WEEKS)
     Route: 048
     Dates: start: 20220616
  5. LINEZOLID [Suspect]
     Active Substance: LINEZOLID
     Dosage: 300 MILLIGRAM
     Route: 065
     Dates: end: 20221130
  6. MOXIFLOXACIN [Suspect]
     Active Substance: MOXIFLOXACIN
     Indication: Product used for unknown indication
     Dosage: 400 MILLIGRAM, QD (400 MG OD PO)
     Route: 048
     Dates: start: 20220616, end: 20221130
  7. BISOPROLOL [Concomitant]
     Active Substance: BISOPROLOL\BISOPROLOL FUMARATE
     Dosage: 5 MILLIGRAM, QD (ONCE A DAY IN THE MORNING)
     Route: 065
     Dates: start: 20220616
  8. AMLODIPINE [Concomitant]
     Active Substance: AMLODIPINE BESYLATE
     Dosage: 10 MILLIGRAM, QD (EVENING)
     Route: 065
     Dates: start: 20220616
  9. INDAPAMIDE [Concomitant]
     Active Substance: INDAPAMIDE
     Dosage: 2.5 MILLIGRAM, QD  (MORNING)
     Route: 065
     Dates: start: 20220616
  10. ATORVASTATIN [Concomitant]
     Active Substance: ATORVASTATIN
     Dosage: 20 MILLIGRAM, QD (AT NIGHT)
     Route: 065
     Dates: start: 20220616
  11. ASPICARD [Concomitant]
     Dosage: 75 MILLIGRAM, QD (AT LUNCH)
     Route: 065
     Dates: start: 20220616

REACTIONS (3)
  - Coronary artery disease [Fatal]
  - Arteriosclerosis [Fatal]
  - Myocardial ischaemia [Fatal]

NARRATIVE: CASE EVENT DATE: 20230914
